FAERS Safety Report 25794570 (Version 1)
Quarter: 2025Q3

REPORT INFORMATION
  Report Type: Spontaneous
  Country: CA (occurrence: CA)
  Receive Date: 20250912
  Receipt Date: 20250912
  Transmission Date: 20251020
  Serious: Yes (Other)
  Sender: AUROBINDO
  Company Number: CA-AUROBINDO-AUR-APL-2024-037407

PATIENT
  Age: 32 Year
  Sex: Female

DRUGS (21)
  1. SERTRALINE [Suspect]
     Active Substance: SERTRALINE HYDROCHLORIDE
     Indication: Drug withdrawal syndrome
     Dosage: 25 MILLIGRAM, ONCE A DAY
     Route: 065
  2. SERTRALINE [Suspect]
     Active Substance: SERTRALINE HYDROCHLORIDE
     Indication: Smoking cessation therapy
     Route: 065
  3. SERTRALINE [Suspect]
     Active Substance: SERTRALINE HYDROCHLORIDE
     Indication: Substance use disorder
  4. SERTRALINE [Suspect]
     Active Substance: SERTRALINE HYDROCHLORIDE
     Indication: Drug withdrawal syndrome
  5. BACLOFEN [Suspect]
     Active Substance: BACLOFEN
     Indication: Smoking cessation therapy
     Dosage: 10 MILLIGRAM, FOUR TIMES/DAY (10MG FOUR TIMES DAILY (ON DAY 1-2))
     Route: 065
  6. BACLOFEN [Suspect]
     Active Substance: BACLOFEN
     Indication: Substance use disorder
     Dosage: 10 MILLIGRAM, 3 TIMES A DAY (10MG THREE TIMES DAILY FOLLOWED BY TWICE DAILY AND ONCE DAILY, RESPECTI
     Route: 065
  7. BACLOFEN [Suspect]
     Active Substance: BACLOFEN
     Indication: Drug withdrawal syndrome
     Dosage: 10 MILLIGRAM, TWO TIMES A DAY
     Route: 065
  8. BACLOFEN [Suspect]
     Active Substance: BACLOFEN
     Dosage: 10 MILLIGRAM, ONCE A DAY
     Route: 065
  9. DIAZEPAM [Suspect]
     Active Substance: DIAZEPAM
     Indication: Smoking cessation therapy
     Dosage: 20 MILLIGRAM, EVERY TWO HOURS (TWO LOADING DOSES OF DIAZEPAM 20MG WERE ADMINISTERED IN TWO HOURS INT
     Route: 065
  10. DIAZEPAM [Suspect]
     Active Substance: DIAZEPAM
     Indication: Substance use disorder
     Dosage: 20 MILLIGRAM, FOUR TIMES/DAY (20MG EVERY 6 HOURS (DAY 2))
     Route: 065
  11. DIAZEPAM [Suspect]
     Active Substance: DIAZEPAM
     Indication: Drug withdrawal syndrome
     Dosage: 10 MILLIGRAM, FOUR TIMES/DAY ((DAY 3-4)
     Route: 065
  12. DIAZEPAM [Suspect]
     Active Substance: DIAZEPAM
     Dosage: 10 MILLIGRAM, EVERY FOUR HOUR (10MG EVERY 4HOURS (DAY 5)
     Route: 065
  13. DIAZEPAM [Suspect]
     Active Substance: DIAZEPAM
     Dosage: 8 MILLIGRAM, EVERY FOUR HOUR (8MG EVERY 4HOURS (DAY 6-9)
     Route: 065
  14. DIAZEPAM [Suspect]
     Active Substance: DIAZEPAM
     Dosage: 8 MILLIGRAM, FOUR TIMES/DAY (8MG EVERY 6HOURS (ON DAY 10))
     Route: 065
  15. DIAZEPAM [Suspect]
     Active Substance: DIAZEPAM
     Dosage: 6 MILLIGRAM, FOUR TIMES/DAY (6MG EVERY 6 HOURS (ON DAY 11))
     Route: 065
  16. DIAZEPAM [Suspect]
     Active Substance: DIAZEPAM
     Dosage: 4 MILLIGRAM, FOUR TIMES/DAY (4MG EVERY 6 HOURS (ON DAY 12))
     Route: 065
  17. DIAZEPAM [Suspect]
     Active Substance: DIAZEPAM
     Dosage: 2 MILLIGRAM, FOUR TIMES/DAY (2MG EVERY 6 HOURS (ON DAY 13))
     Route: 065
  18. DIAZEPAM [Suspect]
     Active Substance: DIAZEPAM
     Route: 065
  19. NICOTINE [Suspect]
     Active Substance: NICOTINE
     Indication: Smoking cessation therapy
     Route: 065
  20. NICOTINE [Suspect]
     Active Substance: NICOTINE
     Indication: Drug withdrawal syndrome
     Route: 062
  21. METHAMPHETAMINE [Suspect]
     Active Substance: METHAMPHETAMINE
     Indication: Anxiolytic therapy
     Route: 065

REACTIONS (4)
  - Exposure during pregnancy [Unknown]
  - Maternal exposure during pregnancy [Unknown]
  - Premature delivery [Unknown]
  - Product use in unapproved indication [Unknown]
